FAERS Safety Report 11147954 (Version 2)
Quarter: 2015Q2

REPORT INFORMATION
  Report Type: Spontaneous
  Country: US (occurrence: US)
  Receive Date: 20150529
  Receipt Date: 20150612
  Transmission Date: 20150821
  Serious: Yes (Other)
  Sender: FDA-Public Use
  Company Number: US-AMGEN-USASP2015039097

PATIENT
  Age: 67 Year
  Sex: Male

DRUGS (3)
  1. PROCRIT [Suspect]
     Active Substance: ERYTHROPOIETIN
     Indication: MYELODYSPLASTIC SYNDROME
     Dosage: 60000 UNITS, 1/WEEK
     Route: 058
     Dates: start: 20141014
  2. LENALIDOMIDE [Concomitant]
     Active Substance: LENALIDOMIDE
     Dosage: 5 MG, DAILY 3 WEEKS ON AND 1 WEEK OFF
     Route: 048
     Dates: start: 20141014
  3. LENALIDOMIDE [Concomitant]
     Active Substance: LENALIDOMIDE
     Indication: MYELODYSPLASTIC SYNDROME
     Dosage: 10 MG, DAILY 3 WEEKS ON 1 WEEKS OFF
     Route: 048
     Dates: start: 20140602

REACTIONS (5)
  - Haematocrit decreased [Unknown]
  - Fatigue [Unknown]
  - Thrombocytopenia [Unknown]
  - Drug ineffective [Unknown]
  - Haemoglobin decreased [Unknown]

NARRATIVE: CASE EVENT DATE: 2014
